FAERS Safety Report 8471786-4 (Version None)
Quarter: 2012Q2

REPORT INFORMATION
  Report Type: 
  Country: None (occurrence: None)
  Receive Date: 20120627
  Receipt Date: 20100922
  Transmission Date: 20120825
  Serious: Yes (Other)
  Sender: FDA-Public Use
  Company Number: US-ROCHE-729233

PATIENT
  Sex: Male
  Weight: 75 kg

DRUGS (1)
  1. NAPROSYN [Suspect]
     Indication: ROTATOR CUFF SYNDROME
     Route: 048

REACTIONS (3)
  - FAECES DISCOLOURED [None]
  - HEMIPARESIS [None]
  - FATIGUE [None]
